FAERS Safety Report 8470632-2 (Version None)
Quarter: 2012Q2

REPORT INFORMATION
  Report Type: 
  Country: None (occurrence: None)
  Receive Date: 20120627
  Receipt Date: 20120620
  Transmission Date: 20120825
  Serious: No
  Sender: FDA-Public Use
  Company Number: US-BAYER-2012-061329

PATIENT
  Sex: Female

DRUGS (1)
  1. YASMIN [Suspect]
     Indication: ENDOMETRITIS
     Dosage: UNK
     Route: 048

REACTIONS (3)
  - EYE DISORDER [None]
  - SKIN DISCOLOURATION [None]
  - HYPERGLYCAEMIA [None]
